FAERS Safety Report 17025583 (Version 1)
Quarter: 2019Q4

REPORT INFORMATION
  Report Type: Spontaneous
  Country: US (occurrence: US)
  Receive Date: 20191113
  Receipt Date: 20191113
  Transmission Date: 20200122
  Serious: Yes (Hospitalization, Other)
  Sender: FDA-Public Use
  Company Number: US-ZYDUS-043059

PATIENT
  Age: 87 Year
  Sex: Female

DRUGS (4)
  1. LEVOTHYROXINE. [Suspect]
     Active Substance: LEVOTHYROXINE
     Indication: HYPOTHYROIDISM
  2. AMIODARONE [Suspect]
     Active Substance: AMIODARONE
     Indication: CARDIAC FAILURE
  3. LEVOTHYROXINE. [Suspect]
     Active Substance: LEVOTHYROXINE
     Indication: HYPOTHYROIDISM
  4. HYDROXYCARBAMIDE [Suspect]
     Active Substance: HYDROXYUREA
     Indication: THROMBOCYTOSIS

REACTIONS (10)
  - Dyspnoea paroxysmal nocturnal [Not Recovered/Not Resolved]
  - Anaemia macrocytic [Unknown]
  - Thrombocytopenia [Unknown]
  - Hepatotoxicity [Unknown]
  - Pulmonary toxicity [Not Recovered/Not Resolved]
  - Dyspnoea exertional [Not Recovered/Not Resolved]
  - Liver disorder [Unknown]
  - Orthopnoea [Not Recovered/Not Resolved]
  - Productive cough [Unknown]
  - Rhinorrhoea [Unknown]
